FAERS Safety Report 6673484-6 (Version None)
Quarter: 2010Q1

REPORT INFORMATION
  Report Type: 
  Country: None (occurrence: None)
  Receive Date: 20100329
  Receipt Date: 20090916
  Transmission Date: 20100710
  Serious: Yes (Other)
  Sender: FDA-Public Use
  Company Number: 2009273823

PATIENT
  Sex: Female
  Weight: 63.5 kg

DRUGS (5)
  1. GEODON [Suspect]
     Indication: PSYCHOTIC DISORDER
     Dates: start: 20090101
  2. WELLBUTRIN [Concomitant]
  3. CYMBALTA [Concomitant]
  4. VITAMIN E [Concomitant]
  5. COGENTIN [Concomitant]

REACTIONS (1)
  - TARDIVE DYSKINESIA [None]
